FAERS Safety Report 9347867 (Version 1)
Quarter: 2013Q2

REPORT INFORMATION
  Report Type: Spontaneous
  Country: US (occurrence: None)
  Receive Date: 20130612
  Receipt Date: 20130612
  Transmission Date: 20140414
  Serious: Yes (Other)
  Sender: FDA-Public Use
  Company Number: None

PATIENT
  Age: 77 Year
  Sex: Male
  Weight: 74.84 kg

DRUGS (1)
  1. XARELTO [Suspect]

REACTIONS (11)
  - Malaise [None]
  - Abdominal pain lower [None]
  - Renal disorder [None]
  - Faeces discoloured [None]
  - Oesophagitis [None]
  - Diarrhoea [None]
  - Blood creatinine increased [None]
  - Urinary retention [None]
  - Chromaturia [None]
  - Drug ineffective [None]
  - Vomiting [None]
